FAERS Safety Report 8139567-9 (Version None)
Quarter: 2012Q1

REPORT INFORMATION
  Report Type: 
  Country: None (occurrence: None)
  Receive Date: 20120215
  Receipt Date: 20120206
  Transmission Date: 20120608
  Serious: Yes (Other)
  Sender: FDA-Public Use
  Company Number: PHHY2012US011364

PATIENT
  Sex: Female

DRUGS (5)
  1. WARFARIN SODIUM [Concomitant]
  2. BUFFERIN [Suspect]
     Indication: MIGRAINE
     Dosage: 8 DF, UNK
     Dates: start: 19610101, end: 20120119
  3. IMITREX [Concomitant]
  4. EXCEDRIN (MIGRAINE) [Concomitant]
  5. BUFFERIN [Suspect]
     Indication: MIGRAINE
     Dosage: 8 DF, UNK
     Dates: end: 20080101

REACTIONS (6)
  - THROMBOSIS [None]
  - INCORRECT DRUG ADMINISTRATION DURATION [None]
  - MULTIPLE SCLEROSIS [None]
  - HEADACHE [None]
  - CONDITION AGGRAVATED [None]
  - MIGRAINE [None]
